FAERS Safety Report 4557955-4 (Version None)
Quarter: 2005Q1

REPORT INFORMATION
  Report Type: 
  Country: None (occurrence: None)
  Receive Date: 20050121
  Receipt Date: 20040223
  Transmission Date: 20050727
  Serious: Yes (Hospitalization)
  Sender: FDA-Public Use
  Company Number: US-BRISTOL-MYERS SQUIBB COMPANY-12519989

PATIENT
  Age: 53 Year
  Sex: Female

DRUGS (6)
  1. SERZONE [Suspect]
     Indication: DEPRESSION
     Dosage: DOSE RANGE:100-400MG/DAY, INITIAL STARTING DOSE WAS 100 MG/DAY
     Route: 048
     Dates: start: 20010614, end: 20021001
  2. PREMARIN [Concomitant]
  3. DITROPAN [Concomitant]
  4. BENTYL [Concomitant]
  5. TRAZODONE HCL [Concomitant]
  6. MONOPRIL [Concomitant]

REACTIONS (7)
  - ASPARTATE AMINOTRANSFERASE INCREASED [None]
  - CHEST PAIN [None]
  - DYSPNOEA [None]
  - GASTRITIS [None]
  - OEDEMA PERIPHERAL [None]
  - PAIN IN EXTREMITY [None]
  - PYELOCALIECTASIS [None]
